FAERS Safety Report 6347236-0 (Version None)
Quarter: 2009Q3

REPORT INFORMATION
  Report Type: 
  Country: None (occurrence: None)
  Receive Date: 20090910
  Receipt Date: 20090902
  Transmission Date: 20100115
  Serious: Yes (Hospitalization, Other)
  Sender: FDA-Public Use
  Company Number: GB-BAYER-200927593GPV

PATIENT
  Age: 63 Year
  Sex: Female
  Weight: 64 kg

DRUGS (8)
  1. SORAFENIB [Suspect]
     Indication: NEUROENDOCRINE CARCINOMA
     Dosage: ORAL TRIAL MEDICATION TAKEN IN THE EVENING.
     Route: 048
     Dates: start: 20060521, end: 20090803
  2. SORAFENIB [Suspect]
     Dates: start: 20090828
  3. LOPERAMIDE [Concomitant]
     Indication: DIARRHOEA
     Route: 048
     Dates: start: 20051209
  4. CODEINE PHOSPHATE [Concomitant]
     Indication: HEPATIC PAIN
     Dosage: 60 MG QDS PRN
     Route: 048
     Dates: start: 20090228
  5. DOMPERIDONE [Concomitant]
     Indication: NAUSEA
     Route: 048
     Dates: start: 20070810
  6. PROCHLORPERAZINE MALEATE [Concomitant]
     Indication: NAUSEA
     Route: 002
  7. PARACETAMOL [Concomitant]
     Indication: PAIN
     Dosage: 15 QDS PRN
     Route: 048
     Dates: start: 20060202
  8. ZOPICLONE [Concomitant]
     Indication: INSOMNIA
     Route: 048
     Dates: start: 20060105

REACTIONS (1)
  - DUODENAL ULCER [None]
